FAERS Safety Report 16785886 (Version 2)
Quarter: 2019Q4

REPORT INFORMATION
  Report Type: Not Available
  Country: US (occurrence: US)
  Receive Date: 20190909
  Receipt Date: 20191001
  Transmission Date: 20200122
  Serious: Yes (Hospitalization)
  Sender: FDA-Public Use
  Company Number: US-NEUROCRINE BIOSCIENCES INC.-2019NBI02527

PATIENT
  Sex: Female

DRUGS (1)
  1. INGREZZA [Suspect]
     Active Substance: VALBENAZINE
     Indication: TARDIVE DYSKINESIA
     Route: 048
     Dates: start: 20180725, end: 20190801

REACTIONS (5)
  - Fall [Recovered/Resolved]
  - Hypotension [Unknown]
  - Blood glucose decreased [Unknown]
  - Seizure [Recovered/Resolved]
  - Gait disturbance [Unknown]
